FAERS Safety Report 17924886 (Version 2)
Quarter: 2020Q3

REPORT INFORMATION
  Report Type: Spontaneous
  Country: NO (occurrence: NO)
  Receive Date: 20200622
  Receipt Date: 20200824
  Transmission Date: 20201103
  Serious: Yes (Death, Other)
  Sender: FDA-Public Use
  Company Number: NO-BRISTOL-MYERS SQUIBB COMPANY-BMS-2020-049428

PATIENT
  Age: 70 Year
  Sex: Female

DRUGS (1)
  1. OPDIVO [Suspect]
     Active Substance: NIVOLUMAB
     Indication: PRODUCT USED FOR UNKNOWN INDICATION
     Dosage: UNAVAILABLE
     Route: 065

REACTIONS (1)
  - Death [Fatal]
